FAERS Safety Report 6721654-0 (Version None)
Quarter: 2010Q2

REPORT INFORMATION
  Report Type: 
  Country: None (occurrence: None)
  Receive Date: 20100512
  Receipt Date: 20100430
  Transmission Date: 20101027
  Serious: Yes (Hospitalization)
  Sender: FDA-Public Use
  Company Number: US-ELI_LILLY_AND_COMPANY-US201005000117

PATIENT
  Sex: Female
  Weight: 51.247 kg

DRUGS (12)
  1. PEMETREXED [Suspect]
     Indication: NON-SMALL CELL LUNG CANCER
     Dosage: 500 MG/M2, OTHER
     Route: 042
     Dates: start: 20090618
  2. CARBOPLATIN [Suspect]
     Indication: NON-SMALL CELL LUNG CANCER
     Dosage: 6 D/F, OTHER
     Route: 042
     Dates: start: 20090618, end: 20090820
  3. BEVACIZUMAB [Suspect]
     Indication: NON-SMALL CELL LUNG CANCER
     Dosage: 15 MG/KG, OTHER
     Route: 042
     Dates: start: 20090618
  4. FOLIC ACID [Concomitant]
     Indication: PREMEDICATION
     Dates: start: 20090609
  5. VITAMIN B-12 [Concomitant]
     Indication: PREMEDICATION
     Dates: start: 20090618
  6. LYRICA [Concomitant]
     Indication: PROPHYLAXIS
  7. PROTONIX [Concomitant]
     Indication: DYSPEPSIA
  8. ROXICODONE [Concomitant]
     Indication: PAIN
  9. SINGULAIR [Concomitant]
     Indication: HYPERSENSITIVITY
  10. CARAFATE [Concomitant]
     Indication: PROPHYLAXIS
     Dates: start: 20090801
  11. DEXAMETHASONE [Concomitant]
     Indication: PREMEDICATION
     Dates: start: 20090618
  12. DURAGESIC-100 [Concomitant]
     Indication: PAIN

REACTIONS (1)
  - SUBARACHNOID HAEMORRHAGE [None]
